FAERS Safety Report 12310582 (Version 1)
Quarter: 2016Q2

REPORT INFORMATION
  Report Type: Spontaneous
  Country: US (occurrence: US)
  Receive Date: 20160427
  Receipt Date: 20160427
  Transmission Date: 20160815
  Serious: Yes (Hospitalization, Other)
  Sender: FDA-Public Use
  Company Number: US-ASTELLAS-2016US015249

PATIENT
  Age: 66 Year
  Sex: Male

DRUGS (6)
  1. PREDNISONE. [Suspect]
     Active Substance: PREDNISONE
     Indication: HEART TRANSPLANT
     Dosage: UNK UNK, UNKNOWN FREQ.
     Route: 065
  2. CELLCEPT [Suspect]
     Active Substance: MYCOPHENOLATE MOFETIL\MYCOPHENOLATE MOFETIL HYDROCHLORIDE
     Indication: HEART TRANSPLANT
     Dosage: UNK UNK, UNKNOWN FREQ.
     Route: 065
  3. CELLCEPT [Suspect]
     Active Substance: MYCOPHENOLATE MOFETIL\MYCOPHENOLATE MOFETIL HYDROCHLORIDE
     Indication: RENAL TRANSPLANT
  4. PROGRAF [Suspect]
     Active Substance: TACROLIMUS\TACROLIMUS ANHYDROUS
     Indication: RENAL TRANSPLANT
  5. PROGRAF [Suspect]
     Active Substance: TACROLIMUS\TACROLIMUS ANHYDROUS
     Indication: HEART TRANSPLANT
     Dosage: UNK UNK, UNKNOWN FREQ.
     Route: 065
  6. PREDNISONE. [Suspect]
     Active Substance: PREDNISONE
     Indication: RENAL TRANSPLANT

REACTIONS (12)
  - Acute pulmonary oedema [Recovered/Resolved]
  - Weight decreased [Recovered/Resolved]
  - Sinus tachycardia [Recovered/Resolved]
  - Thrombocytopenia [Recovered/Resolved]
  - Febrile neutropenia [Recovered/Resolved]
  - Malaise [Recovered/Resolved]
  - Epstein-Barr virus infection [Recovered/Resolved]
  - Sepsis [Recovering/Resolving]
  - Diffuse large B-cell lymphoma [Unknown]
  - Anaemia [Recovered/Resolved]
  - Tumour lysis syndrome [Recovering/Resolving]
  - Septic shock [Recovered/Resolved]

NARRATIVE: CASE EVENT DATE: 201508
